FAERS Safety Report 15814694 (Version 6)
Quarter: 2019Q3

REPORT INFORMATION
  Report Type: Report from Study
  Country: US (occurrence: US)
  Receive Date: 20190111
  Receipt Date: 20190919
  Transmission Date: 20191004
  Serious: Yes (Hospitalization, Other)
  Sender: FDA-Public Use
  Company Number: US-ACTELION-A-NJ2018-168125

PATIENT
  Age: 52 Year
  Sex: Female

DRUGS (15)
  1. POTASSIUM [Concomitant]
     Active Substance: POTASSIUM
  2. DIAZEPAM. [Concomitant]
     Active Substance: DIAZEPAM
  3. AMIODARONE [Concomitant]
     Active Substance: AMIODARONE
  4. ELIQUIS [Concomitant]
     Active Substance: APIXABAN
  5. VITAMIN C [Concomitant]
     Active Substance: ASCORBIC ACID
  6. OPSUMIT [Suspect]
     Active Substance: MACITENTAN
     Indication: PULMONARY ARTERIAL HYPERTENSION
     Dosage: 10 MG, QD
     Route: 048
     Dates: start: 20170223
  7. VITAMIN D [Concomitant]
     Active Substance: VITAMIN D NOS
  8. DULERA [Concomitant]
     Active Substance: FORMOTEROL FUMARATE DIHYDRATE\MOMETASONE FUROATE
  9. FUROSEMIDE. [Concomitant]
     Active Substance: FUROSEMIDE
  10. IBU [Concomitant]
     Active Substance: IBUPROFEN
  11. DILTIAZEM. [Concomitant]
     Active Substance: DILTIAZEM
  12. GINGER. [Concomitant]
     Active Substance: GINGER
  13. SPIRONOLACTON [Concomitant]
     Active Substance: SPIRONOLACTONE
  14. TURMERIC [Concomitant]
     Active Substance: HERBALS\TURMERIC
  15. PROAIR HFA [Concomitant]
     Active Substance: ALBUTEROL SULFATE

REACTIONS (10)
  - Product dose omission [Unknown]
  - Fall [Not Recovered/Not Resolved]
  - Malaise [Recovered/Resolved]
  - Hypersensitivity [Unknown]
  - Hospitalisation [Unknown]
  - Contusion [Not Recovered/Not Resolved]
  - Lower limb fracture [Recovered/Resolved]
  - Renal disorder [Not Recovered/Not Resolved]
  - Nervousness [Unknown]
  - Nasopharyngitis [Recovered/Resolved]

NARRATIVE: CASE EVENT DATE: 201801
